FAERS Safety Report 9511893 (Version 1)
Quarter: 2013Q1

REPORT INFORMATION
  Report Type: Spontaneous
  Country: US (occurrence: None)
  Receive Date: 20130305
  Receipt Date: 20130305
  Transmission Date: 20140127
  Serious: Yes (Disabling)
  Sender: FDA-Public Use
  Company Number: 163-21880-11102492

PATIENT
  Age: 73 Year
  Sex: Female
  Weight: 48.99 kg

DRUGS (7)
  1. REVLIMID [Suspect]
     Indication: PLASMA CELL MYELOMA
     Dosage: 25 MG, 1 IN 1 D, PO
     Route: 048
     Dates: start: 20100216, end: 20101216
  2. AREDIA (PAMIDRONATE DISODIUM) [Concomitant]
  3. AVELOX (MOXIFLOXACIN HYDROCHLORIDE) [Concomitant]
  4. DEXAMETHASONE (DEXAMETHASONE) [Concomitant]
  5. OXYCODONE (OXYCODONE) [Concomitant]
  6. VICODIN (VICODIN) [Concomitant]
  7. MELOXICAM (MELOXICAM) [Concomitant]

REACTIONS (1)
  - Back pain [None]
